FAERS Safety Report 11205216 (Version 1)
Quarter: 2015Q2

REPORT INFORMATION
  Report Type: Spontaneous
  Country: DE (occurrence: None)
  Receive Date: 20150617
  Receipt Date: 20150617
  Transmission Date: 20150821
  Serious: Yes (Other)
  Sender: FDA-Public Use
  Company Number: KAD201506-001598

PATIENT
  Age: 57 Year
  Sex: Male
  Weight: 95 kg

DRUGS (7)
  1. VIEKIRAX (OMBITASVIR, PARITAPREVIR, RITONAVIR) [Suspect]
     Active Substance: OMBITASVIR\PARITAPREVIR\RITONAVIR
     Indication: HEPATITIS C
     Dosage: TWO IN ONE DAY
     Route: 048
     Dates: start: 20150501, end: 20150505
  2. SPIRONOLACTON (SPIRONOLACTONE) (SPIRONOLACTONE) [Concomitant]
  3. KALINOR-BRAUSETABLETTEN (CITRIC ACID, POTASSIUM BICARBONATE, POTASSIUM CITRATE) (CITRIC ACID, POTASSIUM BICARBONATE, POTASSIUM CITRATE) [Concomitant]
  4. RIBAVIRIN 200 MG (RIBAVIRIN) [Suspect]
     Active Substance: RIBAVIRIN
     Indication: HEPATITIS C
     Dosage: 5 IN ONE DAY
     Route: 048
     Dates: start: 20150501, end: 20150505
  5. ASS (ACETYLSALICYLIC ACID) (ACETYLSALICYLIC ACID) [Concomitant]
  6. EXVIERA (DASABUVIR) [Suspect]
     Active Substance: DASABUVIR
     Indication: HEPATITIS C
     Dosage: TWO IN ONE DAY
     Route: 048
     Dates: start: 20150501, end: 20150505
  7. TORASEMID (TORASEMIDE) (TORASEMIDE) [Concomitant]

REACTIONS (2)
  - Blister [None]
  - Dermatitis allergic [None]

NARRATIVE: CASE EVENT DATE: 20150502
